FAERS Safety Report 11733253 (Version 1)
Quarter: 2015Q4

REPORT INFORMATION
  Report Type: Report from Study
  Country: AT (occurrence: AT)
  Receive Date: 20151113
  Receipt Date: 20151113
  Transmission Date: 20160304
  Serious: Yes (Hospitalization)
  Sender: FDA-Public Use
  Company Number: AT-ROCHE-1450533

PATIENT
  Age: 63 Year
  Sex: Female
  Weight: 62 kg

DRUGS (12)
  1. CARBOPLATIN. [Suspect]
     Active Substance: CARBOPLATIN
     Indication: OVARIAN CANCER
     Dosage: LAST DOSE PRIOR TO THE SAE :17/SEP/2014
     Route: 042
     Dates: start: 20140606
  2. DEXAMETHASONE. [Concomitant]
     Active Substance: DEXAMETHASONE
     Dosage: 8-0-0
     Route: 048
     Dates: start: 20141016, end: 20141019
  3. DEXAMETHASONE. [Concomitant]
     Active Substance: DEXAMETHASONE
     Dosage: 8-0-0
     Route: 042
     Dates: start: 20141015, end: 20141015
  4. DEXAMETHASONE. [Concomitant]
     Active Substance: DEXAMETHASONE
     Dosage: DOSE 1-0-1
     Route: 048
     Dates: start: 20140821, end: 20140824
  5. DEXAMETHASONE. [Concomitant]
     Active Substance: DEXAMETHASONE
     Dosage: DOSE 1-0-1
     Route: 065
     Dates: start: 20140921
  6. GEMCITABINE [Suspect]
     Active Substance: GEMCITABINE\GEMCITABINE HYDROCHLORIDE
     Indication: OVARIAN CANCER
     Dosage: LAST DOSE PRIOR TO THE SAE:  24/SEP/2014, D1/8
     Route: 042
     Dates: start: 20140606
  7. NEULASTA [Concomitant]
     Active Substance: PEGFILGRASTIM
     Indication: NEUTROPENIA
     Dosage: DOSE 1X1
     Route: 058
     Dates: start: 20140725, end: 20140725
  8. NEULASTA [Concomitant]
     Active Substance: PEGFILGRASTIM
     Indication: PROPHYLAXIS
     Dosage: DOSE 1X1
     Route: 058
     Dates: start: 20140828, end: 20140828
  9. NEULASTA [Concomitant]
     Active Substance: PEGFILGRASTIM
     Dosage: DOSE 1X1
     Route: 058
     Dates: start: 20140925, end: 20140925
  10. BEVACIZUMAB [Suspect]
     Active Substance: BEVACIZUMAB
     Indication: OVARIAN CANCER
     Dosage: LAST DOSE PRIOR TO THE SAE 17/SEP/2014.
     Route: 042
     Dates: start: 20140606
  11. DEXAMETHASONE. [Concomitant]
     Active Substance: DEXAMETHASONE
     Indication: PROPHYLAXIS
     Dosage: DOSE 1 0 1
     Route: 048
     Dates: start: 20140725, end: 20140728
  12. DEXAMETHASONE. [Concomitant]
     Active Substance: DEXAMETHASONE
     Route: 042
     Dates: start: 20141022, end: 20141022

REACTIONS (2)
  - Thrombocytopenia [Recovered/Resolved]
  - Anaemia [Recovered/Resolved]

NARRATIVE: CASE EVENT DATE: 20140808
